FAERS Safety Report 19769124 (Version 2)
Quarter: 2021Q4

REPORT INFORMATION
  Report Type: Spontaneous
  Country: FR (occurrence: FR)
  Receive Date: 20210831
  Receipt Date: 20211005
  Transmission Date: 20220303
  Serious: Yes (Other)
  Sender: FDA-Public Use
  Company Number: NVSC2021FR194591

PATIENT

DRUGS (1)
  1. ETANERCEPT [Suspect]
     Active Substance: ETANERCEPT
     Indication: Inflammatory bowel disease
     Dosage: UNK
     Route: 065

REACTIONS (2)
  - Myelitis [Unknown]
  - Product use in unapproved indication [Unknown]
